FAERS Safety Report 7103882-8 (Version None)
Quarter: 2010Q4

REPORT INFORMATION
  Report Type: 
  Country: None (occurrence: None)
  Receive Date: 20101115
  Receipt Date: 20101105
  Transmission Date: 20110411
  Serious: Yes (Hospitalization, Other)
  Sender: FDA-Public Use
  Company Number: PHHY2010JP68713

PATIENT
  Sex: Female
  Weight: 53 kg

DRUGS (2)
  1. ZOMETA [Suspect]
     Indication: METASTASES TO BONE
     Dosage: 4 MG MONTHLY
     Dates: start: 20060101, end: 20081201
  2. ZOMETA [Suspect]
     Dosage: 4 MG MONTHLY
     Dates: start: 20090901

REACTIONS (11)
  - BONE DISORDER [None]
  - DENTURE WEARER [None]
  - GINGIVAL BLEEDING [None]
  - GINGIVAL ERYTHEMA [None]
  - GINGIVAL PAIN [None]
  - GINGIVAL SWELLING [None]
  - GINGIVAL ULCERATION [None]
  - OSTEONECROSIS OF JAW [None]
  - PRIMARY SEQUESTRUM [None]
  - PURULENT DISCHARGE [None]
  - SEQUESTRECTOMY [None]
